FAERS Safety Report 10417963 (Version 1)
Quarter: 2014Q3

REPORT INFORMATION
  Report Type: Spontaneous
  Country: US (occurrence: TZ)
  Receive Date: 20140829
  Receipt Date: 20140829
  Transmission Date: 20150326
  Serious: No
  Sender: FDA-Public Use
  Company Number: US-GLAXOSMITHKLINE-A1034118A

PATIENT
  Sex: Female

DRUGS (1)
  1. MALARONE [Suspect]
     Active Substance: ATOVAQUONE\PROGUANIL HYDROCHLORIDE
     Indication: MALARIA
     Route: 065

REACTIONS (3)
  - Nausea [Unknown]
  - Adverse event [Unknown]
  - Dizziness [Unknown]
